FAERS Safety Report 10420616 (Version 1)
Quarter: 2014Q3

REPORT INFORMATION
  Report Type: Spontaneous
  Country: US (occurrence: None)
  Receive Date: 20140708
  Receipt Date: 20140708
  Transmission Date: 20150326
  Serious: Yes (Other)
  Sender: FDA-Public Use
  Company Number: 1212403-2

PATIENT
  Age: 40 Year
  Sex: Female
  Weight: 56.25 kg

DRUGS (1)
  1. NIX COMPLETE MAXIMUM STRENGTH LICE ELIMINATION [Suspect]
     Active Substance: PERMETHRIN
     Indication: LICE INFESTATION
     Dosage: TOPICAL APPLICATION X 3
     Route: 061
     Dates: start: 20130615, end: 20130627

REACTIONS (4)
  - Erythema [None]
  - Urticaria [None]
  - Pruritus [None]
  - Rash [None]

NARRATIVE: CASE EVENT DATE: 20130615
